FAERS Safety Report 9401538 (Version 1)
Quarter: 2013Q3

REPORT INFORMATION
  Report Type: Spontaneous
  Country: GR (occurrence: GR)
  Receive Date: 20130716
  Receipt Date: 20130716
  Transmission Date: 20140515
  Serious: Yes (Other)
  Sender: FDA-Public Use
  Company Number: GR-ROCHE-1248878

PATIENT
  Sex: 0
  Weight: 2.67 kg

DRUGS (4)
  1. ALTEPLASE [Suspect]
     Indication: ARTERIAL THROMBOSIS
     Route: 042
  2. ALTEPLASE [Suspect]
     Indication: ISCHAEMIA
  3. ENOXAPARIN [Concomitant]
     Indication: ARTERIAL THROMBOSIS
     Dosage: 100 U/KG/DOSE
     Route: 065
  4. ENOXAPARIN [Concomitant]
     Indication: ISCHAEMIA

REACTIONS (1)
  - Blood fibrinogen decreased [Unknown]
